FAERS Safety Report 20998946 (Version 4)
Quarter: 2022Q3

REPORT INFORMATION
  Report Type: Report from Study
  Country: AR (occurrence: AR)
  Receive Date: 20220623
  Receipt Date: 20220831
  Transmission Date: 20221027
  Serious: Yes (Life-Threatening, Hospitalization, Other)
  Sender: FDA-Public Use
  Company Number: AR-GLAXOSMITHKLINE-AR2022GSK094382

PATIENT

DRUGS (2)
  1. BELIMUMAB [Suspect]
     Active Substance: BELIMUMAB
     Indication: Systemic lupus erythematosus
     Dosage: EVERY 10 DAYS
     Route: 058
     Dates: start: 20210301, end: 20220612
  2. BELIMUMAB [Suspect]
     Active Substance: BELIMUMAB
     Dosage: EVERY 10 DAYS
     Route: 058
     Dates: start: 20220307

REACTIONS (2)
  - Suicide attempt [Recovered/Resolved]
  - Weight decreased [Not Recovered/Not Resolved]

NARRATIVE: CASE EVENT DATE: 20220530
